FAERS Safety Report 6943341-6 (Version None)
Quarter: 2010Q3

REPORT INFORMATION
  Report Type: 
  Country: None (occurrence: None)
  Receive Date: 20100826
  Receipt Date: 20100817
  Transmission Date: 20110219
  Serious: Yes (Death, Life-Threatening, Other)
  Sender: FDA-Public Use
  Company Number: CN-BAXTER-2010BH021820

PATIENT
  Age: 61 Year
  Sex: Female

DRUGS (4)
  1. SODIUM CHLORIDE 0.9% IN PLASTIC CONTAINER [Suspect]
     Indication: COUGH
     Route: 042
     Dates: start: 20100815, end: 20100815
  2. SODIUM CHLORIDE 0.9% IN PLASTIC CONTAINER [Suspect]
     Indication: NASOPHARYNGITIS
     Route: 042
     Dates: start: 20100815, end: 20100815
  3. FOSFOMYCIN [Suspect]
     Indication: COUGH
     Route: 042
     Dates: start: 20100815, end: 20100815
  4. FOSFOMYCIN [Suspect]
     Indication: NASOPHARYNGITIS
     Route: 042
     Dates: start: 20100815, end: 20100815

REACTIONS (4)
  - ANAPHYLACTIC SHOCK [None]
  - ARRHYTHMIA [None]
  - DEATH [None]
  - INFUSION RELATED REACTION [None]
